FAERS Safety Report 23100143 (Version 1)
Quarter: 2023Q4

REPORT INFORMATION
  Report Type: Spontaneous
  Country: BE (occurrence: BE)
  Receive Date: 20231024
  Receipt Date: 20231024
  Transmission Date: 20240110
  Serious: Yes (Life-Threatening, Hospitalization)
  Sender: FDA-Public Use
  Company Number: BE-AstraZeneca-2023-26279

PATIENT
  Age: 67 Year
  Sex: Male

DRUGS (10)
  1. FLUOROURACIL [Suspect]
     Active Substance: FLUOROURACIL
     Indication: Oesophageal squamous cell carcinoma
     Dosage: 1000 MILLIGRAM/SQ. METER
     Route: 065
     Dates: start: 20230809, end: 20230813
  2. CISPLATIN [Suspect]
     Active Substance: CISPLATIN
     Indication: Oesophageal squamous cell carcinoma
     Dosage: 80 MILLIGRAM/SQ. METER
     Route: 065
     Dates: start: 20230809, end: 20230809
  3. DURVALUMAB [Suspect]
     Active Substance: DURVALUMAB
     Indication: Oesophageal squamous cell carcinoma
     Dosage: 1500 MILLIGRAM
     Route: 042
     Dates: start: 20230809, end: 20230809
  4. ASPIRIN DL-LYSINE [Concomitant]
     Active Substance: ASPIRIN DL-LYSINE
     Indication: Ischaemic stroke
     Dosage: 100 MILLIGRAM, QD
     Route: 048
     Dates: start: 20230821
  5. BISOPROLOL FUMARATE\HYDROCHLOROTHIAZIDE [Concomitant]
     Active Substance: BISOPROLOL FUMARATE\HYDROCHLOROTHIAZIDE
     Indication: Hypertension
     Dosage: 1 DOSAGE FORM, QD (TABLET)
     Route: 048
     Dates: start: 2010
  6. CRESTOR [Concomitant]
     Active Substance: ROSUVASTATIN CALCIUM
     Indication: Ischaemic stroke
     Dosage: 40 MILLIGRAM, QD
     Route: 048
     Dates: start: 20230821
  7. CLOPIDOGREL [Concomitant]
     Active Substance: CLOPIDOGREL BISULFATE
     Indication: Ischaemic stroke
     Dosage: UNK
     Route: 065
  8. ULTRA K [Concomitant]
     Indication: Hypokalaemia
     Dosage: 4680 MILLIGRAM, QD
     Route: 048
     Dates: start: 20230828, end: 20230904
  9. GELATIN [Concomitant]
     Active Substance: GELATIN
     Indication: Diarrhoea
     Dosage: 500 MILLIGRAM (1 AS NECESSARY)
     Route: 048
     Dates: start: 20230810
  10. ARANESP [Concomitant]
     Active Substance: DARBEPOETIN ALFA
     Indication: Anaemia
     Dosage: 500 MICROGRAM, QD
     Route: 058
     Dates: start: 20230921, end: 20230921

REACTIONS (2)
  - Neutropenia [Not Recovered/Not Resolved]
  - Thrombocytopenia [Not Recovered/Not Resolved]

NARRATIVE: CASE EVENT DATE: 20230921
